FAERS Safety Report 7834888-9 (Version None)
Quarter: 2011Q4

REPORT INFORMATION
  Report Type: 
  Country: None (occurrence: None)
  Receive Date: 20111024
  Receipt Date: 20111011
  Transmission Date: 20120403
  Serious: Yes (Other)
  Sender: FDA-Public Use
  Company Number: US-BAYER-2011-044974

PATIENT
  Sex: Female

DRUGS (6)
  1. ACIPHEX [Concomitant]
     Dosage: 20 MG, QD
  2. YAZ [Suspect]
     Dosage: UNK
     Dates: start: 20080201, end: 20080801
  3. YASMIN [Suspect]
     Dosage: UNK
     Dates: start: 20080201, end: 20080801
  4. ASACOL [Concomitant]
     Dosage: 2 DF, BID
  5. ZOLOFT [Concomitant]
     Indication: ANXIETY
     Dosage: 50 MG, UNK
  6. PRILOSEC [Concomitant]
     Dosage: 20 MG, MT

REACTIONS (7)
  - GALLBLADDER INJURY [None]
  - EMOTIONAL DISTRESS [None]
  - ANXIETY [None]
  - CHOLECYSTITIS CHRONIC [None]
  - PAIN [None]
  - INJURY [None]
  - GENERAL PHYSICAL HEALTH DETERIORATION [None]
